FAERS Safety Report 5230580-8 (Version None)
Quarter: 2007Q1

REPORT INFORMATION
  Report Type: 
  Country: None (occurrence: None)
  Receive Date: 20070206
  Receipt Date: 20070131
  Transmission Date: 20070707
  Serious: Yes (Other)
  Sender: FDA-Public Use
  Company Number: GB-GLAXOSMITHKLINE-B0359423A

PATIENT
  Sex: Male

DRUGS (5)
  1. SEROXAT [Suspect]
     Route: 065
  2. HYDROXYZINE [Concomitant]
     Route: 065
  3. VENTOLIN [Concomitant]
     Route: 065
  4. SEREVENT [Concomitant]
     Route: 065
  5. FLIXOTIDE [Concomitant]
     Route: 065

REACTIONS (2)
  - COMPLETED SUICIDE [None]
  - DRUG WITHDRAWAL SYNDROME [None]
